FAERS Safety Report 8841014 (Version 1)
Quarter: 2012Q4

REPORT INFORMATION
  Report Type: 
  Country: US (occurrence: US)
  Receive Date: 20121015
  Receipt Date: 20121015
  Transmission Date: 20130627
  Serious: Yes (Other)
  Sender: FDA-Public Use
  Company Number: CHPA2012US021063

PATIENT
  Age: 57 Year
  Sex: Male

DRUGS (3)
  1. BENEFIBER W/ WHEAT DEXTRIN [Suspect]
     Indication: CONSTIPATION
     Dosage: 2 TSP, QD
     Route: 048
     Dates: start: 200404
  2. INDOMETHACIN [Concomitant]
     Dosage: 1 pill, TID
     Route: 048
     Dates: start: 2010
  3. NSAID^S [Concomitant]

REACTIONS (6)
  - Bone disorder [Unknown]
  - Joint dislocation postoperative [Recovered/Resolved]
  - Arthritis [Unknown]
  - Hiatus hernia [Unknown]
  - Oesophageal irritation [Unknown]
  - Off label use [Unknown]
